FAERS Safety Report 6871603-X (Version None)
Quarter: 2010Q2

REPORT INFORMATION
  Report Type: 
  Country: None (occurrence: None)
  Receive Date: 20100610
  Receipt Date: 20100602
  Transmission Date: 20101027
  Serious: No
  Sender: FDA-Public Use
  Company Number: 2010-00464

PATIENT
  Age: 25 Year
  Sex: Male

DRUGS (1)
  1. ZICAM EXTREME CONGESTION RELIEF [Suspect]
     Dosage: QD X 1 DAY, 1 DOSE
     Dates: start: 20100602, end: 20100602

REACTIONS (2)
  - ANOSMIA [None]
  - NASAL CONGESTION [None]
